FAERS Safety Report 16278785 (Version 1)
Quarter: 2019Q2

REPORT INFORMATION
  Report Type: Spontaneous
  Country: CA (occurrence: CA)
  Receive Date: 20190506
  Receipt Date: 20190506
  Transmission Date: 20190711
  Serious: Yes (Other)
  Sender: FDA-Public Use
  Company Number: CA-PFIZER INC-2019191667

PATIENT
  Age: 19 Year
  Sex: Female

DRUGS (2)
  1. GENTAMICIN. [Suspect]
     Active Substance: GENTAMICIN
     Indication: PYREXIA
     Dosage: STARTED ON THE THIRD HOSPITAL DAY
  2. CEFAZOLIN [Suspect]
     Active Substance: CEFAZOLIN
     Indication: PYREXIA
     Dosage: UNK
     Route: 042

REACTIONS (2)
  - Pseudomembranous colitis [Recovering/Resolving]
  - Ileus paralytic [Recovering/Resolving]
